FAERS Safety Report 18025182 (Version 2)
Quarter: 2024Q4

REPORT INFORMATION
  Report Type: Spontaneous
  Country: CA (occurrence: CA)
  Receive Date: 20200715
  Receipt Date: 20241009
  Transmission Date: 20250115
  Serious: Yes (Other)
  Sender: ALEXION PHARMACEUTICALS
  Company Number: 2020SE86918

PATIENT
  Age: 44 Year

DRUGS (14)
  1. FASLODEX [Suspect]
     Active Substance: FULVESTRANT
     Indication: Breast cancer female
     Dosage: UNKNOWN
  2. FASLODEX [Suspect]
     Active Substance: FULVESTRANT
     Dosage: UNKNOWN
  3. FASLODEX [Suspect]
     Active Substance: FULVESTRANT
     Dosage: UNKNOWN
  4. FASLODEX [Suspect]
     Active Substance: FULVESTRANT
     Dosage: UNKNOWN
  5. IBRANCE [Suspect]
     Active Substance: PALBOCICLIB
     Indication: Breast cancer female
     Dosage: 125 MILLIGRAM, UNK, FREQUENCY: UNK
  6. IBRANCE [Suspect]
     Active Substance: PALBOCICLIB
     Dosage: 125 MILLIGRAM, UNK, FREQUENCY: UNK
  7. IBRANCE [Suspect]
     Active Substance: PALBOCICLIB
     Dosage: 125 MILLIGRAM, UNK, FREQUENCY: UNK
  8. IBRANCE [Suspect]
     Active Substance: PALBOCICLIB
     Dosage: 125 MILLIGRAM, UNK, FREQUENCY: UNK
  9. LETROZOLE [Suspect]
     Active Substance: LETROZOLE
     Indication: Breast cancer female
     Dosage: 25 MILLIGRAM, QD
  10. LETROZOLE [Suspect]
     Active Substance: LETROZOLE
     Dosage: 25 MILLIGRAM, QD
  11. LETROZOLE [Suspect]
     Active Substance: LETROZOLE
     Dosage: 25 MILLIGRAM, QD
  12. LETROZOLE [Suspect]
     Active Substance: LETROZOLE
     Dosage: 25 MILLIGRAM, QD
  13. GOSERELIN [Concomitant]
     Active Substance: GOSERELIN
     Indication: Breast cancer female
     Dosage: UNKNOWN
  14. GOSERELIN [Concomitant]
     Active Substance: GOSERELIN
     Dosage: UNKNOWN

REACTIONS (5)
  - Bronchiectasis [Not Recovered/Not Resolved]
  - Neoplasm progression [Not Recovered/Not Resolved]
  - Pain [Not Recovered/Not Resolved]
  - Pleural effusion [Not Recovered/Not Resolved]
  - Fatigue [Not Recovered/Not Resolved]
